FAERS Safety Report 15611456 (Version 2)
Quarter: 2018Q4

REPORT INFORMATION
  Report Type: Spontaneous
  Country: US (occurrence: US)
  Receive Date: 20181113
  Receipt Date: 20181204
  Transmission Date: 20190205
  Serious: Yes (Other)
  Sender: FDA-Public Use
  Company Number: US-ROCHE-2209624

PATIENT
  Age: 61 Year
  Sex: Female

DRUGS (12)
  1. VINCRISTIN [Concomitant]
     Active Substance: VINCRISTINE
     Indication: DIFFUSE LARGE B-CELL LYMPHOMA
     Dosage: NO
     Route: 065
     Dates: start: 2015, end: 2015
  2. OXALIPLATIN. [Concomitant]
     Active Substance: OXALIPLATIN
  3. CISPLATIN. [Concomitant]
     Active Substance: CISPLATIN
  4. NIVOLUMAB [Concomitant]
     Active Substance: NIVOLUMAB
  5. RITUXAN [Suspect]
     Active Substance: RITUXIMAB
     Indication: DIFFUSE LARGE B-CELL LYMPHOMA
     Route: 065
     Dates: start: 2015, end: 2015
  6. GEMCITABINE [Concomitant]
     Active Substance: GEMCITABINE\GEMCITABINE HYDROCHLORIDE
  7. IBRUTINIB [Suspect]
     Active Substance: IBRUTINIB
     Indication: DIFFUSE LARGE B-CELL LYMPHOMA
     Dosage: NO
     Route: 065
     Dates: start: 2015, end: 2015
  8. PREDNISOLON [Concomitant]
     Active Substance: PREDNISOLONE
     Indication: DIFFUSE LARGE B-CELL LYMPHOMA
     Dosage: NO
     Route: 065
     Dates: start: 2015, end: 2015
  9. DEXAMETHASONE. [Concomitant]
     Active Substance: DEXAMETHASONE
  10. REVLIMID [Suspect]
     Active Substance: LENALIDOMIDE
     Indication: DIFFUSE LARGE B-CELL LYMPHOMA
     Dosage: NO
     Route: 065
     Dates: start: 2015, end: 2015
  11. DOXORUBICIN [Concomitant]
     Active Substance: DOXORUBICIN
     Indication: DIFFUSE LARGE B-CELL LYMPHOMA
  12. CYCLOPHOSPHAMIDE. [Concomitant]
     Active Substance: CYCLOPHOSPHAMIDE
     Indication: DIFFUSE LARGE B-CELL LYMPHOMA

REACTIONS (7)
  - Diffuse large B-cell lymphoma recurrent [Unknown]
  - Retroperitoneal mass [Unknown]
  - Drug ineffective [Unknown]
  - Nervous system disorder [Recovered/Resolved]
  - Spleen disorder [Unknown]
  - Abdominal pain [Unknown]
  - Graft complication [Not Recovered/Not Resolved]

NARRATIVE: CASE EVENT DATE: 2015
